FAERS Safety Report 19393297 (Version 1)
Quarter: 2021Q2

REPORT INFORMATION
  Report Type: Spontaneous
  Country: US (occurrence: US)
  Receive Date: 20210609
  Receipt Date: 20210609
  Transmission Date: 20210717
  Serious: No
  Sender: FDA-Public Use
  Company Number: US-BAYER-2021-152702

PATIENT
  Age: 46 Year
  Sex: Female

DRUGS (5)
  1. CLARITIN [Suspect]
     Active Substance: LORATADINE
     Indication: RASH
  2. CLARITIN [Suspect]
     Active Substance: LORATADINE
     Indication: PRURITUS
  3. CLARITIN [Suspect]
     Active Substance: LORATADINE
     Indication: THERAPEUTIC SKIN CARE TOPICAL
  4. BENADRYL [Concomitant]
     Active Substance: DIPHENHYDRAMINE HYDROCHLORIDE
  5. CORTISONE [Concomitant]
     Active Substance: CORTISONE

REACTIONS (1)
  - Drug ineffective for unapproved indication [Unknown]
